FAERS Safety Report 20414776 (Version 1)
Quarter: 2022Q1

REPORT INFORMATION
  Report Type: Spontaneous
  Country: US (occurrence: US)
  Receive Date: 20220202
  Receipt Date: 20220202
  Transmission Date: 20220424
  Serious: Yes (Other)
  Sender: FDA-Public Use
  Company Number: US-BAYER-2022A014784

PATIENT

DRUGS (1)
  1. EYLEA [Suspect]
     Active Substance: AFLIBERCEPT
     Indication: Neovascular age-related macular degeneration
     Dosage: 2 MG, Q1MON
     Route: 031

REACTIONS (3)
  - Detachment of retinal pigment epithelium [Recovered/Resolved]
  - Subretinal fluid [Recovered/Resolved]
  - Visual impairment [Recovered/Resolved]
